FAERS Safety Report 7153503-3 (Version None)
Quarter: 2010Q4

REPORT INFORMATION
  Report Type: 
  Country: None (occurrence: None)
  Receive Date: 20101213
  Receipt Date: 20101206
  Transmission Date: 20110411
  Serious: Yes (Hospitalization)
  Sender: FDA-Public Use
  Company Number: B0688073A

PATIENT
  Age: 21 Year
  Sex: Female

DRUGS (1)
  1. ZOVIRAX [Suspect]
     Indication: MENINGITIS
     Dosage: 750MG PER DAY
     Route: 042

REACTIONS (1)
  - NEUROSIS [None]
